FAERS Safety Report 9001102 (Version 5)
Quarter: 2014Q1

REPORT INFORMATION
  Report Type: Spontaneous
  Country: US (occurrence: None)
  Receive Date: 20130104
  Receipt Date: 20140327
  Transmission Date: 20141002
  Serious: Yes (Other)
  Sender: FDA-Public Use
  Company Number: ADR-2012-02329

PATIENT
  Sex: Female

DRUGS (6)
  1. BACLOFEN INTRATHECAL [Suspect]
     Indication: PAIN
  2. CLONIDINE INTRATHECAL [Suspect]
  3. DILAUDID [Suspect]
  4. SALINE [Suspect]
  5. ORAL MEDICATIONS [Suspect]
  6. MUSCLE RELAXER [Suspect]

REACTIONS (10)
  - Drug ineffective [None]
  - Pain in extremity [None]
  - Contusion [None]
  - Nerve injury [None]
  - Device breakage [None]
  - Back pain [None]
  - Contusion [None]
  - Pain in extremity [None]
  - No therapeutic response [None]
  - Cerebrospinal fluid leakage [None]
